FAERS Safety Report 5086000-X (Version None)
Quarter: 2006Q3

REPORT INFORMATION
  Report Type: 
  Country: None (occurrence: None)
  Receive Date: 20060817
  Receipt Date: 20060803
  Transmission Date: 20061208
  Serious: Yes (Other)
  Sender: FDA-Public Use
  Company Number: BMRN-2006-029

PATIENT
  Sex: 0

DRUGS (3)
  1. ORAPRED (PREDNISOLONE SODIUM PHOSPHATE) SOLUTION (EXCEPT SYRUP), 20.2 [Suspect]
     Indication: AUTOIMMUNE DISORDER
  2. ORAPRED (PREDNISOLONE SODIUM PHOSPHATE) SOLUTION (EXCEPT SYRUP), 20.2 [Suspect]
     Indication: PANCREATITIS
  3. PREDNISOLONE [Suspect]
     Dosage: 2.5-5MG OD PO
     Route: 048

REACTIONS (1)
  - RECTAL CANCER [None]
